FAERS Safety Report 4724799-X (Version None)
Quarter: 2005Q3

REPORT INFORMATION
  Report Type: 
  Country: None (occurrence: None)
  Receive Date: 20050726
  Receipt Date: 20050715
  Transmission Date: 20060218
  Serious: Yes (Other)
  Sender: FDA-Public Use
  Company Number: JP-JNJFOC-20050702673

PATIENT
  Age: 55 Year
  Sex: Male

DRUGS (1)
  1. TAVANIC [Suspect]
     Indication: PNEUMONIA
     Route: 065
     Dates: start: 20050601, end: 20050601

REACTIONS (1)
  - AMYOTROPHY [None]
